FAERS Safety Report 9401840 (Version 1)
Quarter: 2013Q3

REPORT INFORMATION
  Report Type: Spontaneous
  Country: US (occurrence: US)
  Receive Date: 20130716
  Receipt Date: 20130716
  Transmission Date: 20140515
  Serious: Yes (Hospitalization)
  Sender: FDA-Public Use
  Company Number: US-SANOFI-AVENTIS-2013SA070553

PATIENT
  Age: 75 Year
  Sex: Male

DRUGS (3)
  1. LANTUS SOLOSTAR [Suspect]
     Indication: TYPE 2 DIABETES MELLITUS
     Dosage: TAKEN TO - TWO WEEKS DOSE:10 UNIT(S)
     Route: 065
  2. SOLOSTAR [Suspect]
     Indication: TYPE 2 DIABETES MELLITUS
     Dosage: TAKEN TO - 2 WEEKS
  3. NOVOLOG [Concomitant]
     Route: 065

REACTIONS (4)
  - Intervertebral disc protrusion [Unknown]
  - Blood glucose increased [Unknown]
  - Expired drug administered [Unknown]
  - Incorrect product storage [Unknown]
